FAERS Safety Report 7638585-4 (Version None)
Quarter: 2011Q3

REPORT INFORMATION
  Report Type: 
  Country: None (occurrence: None)
  Receive Date: 20110727
  Receipt Date: 20110719
  Transmission Date: 20111222
  Serious: Yes (Hospitalization)
  Sender: FDA-Public Use
  Company Number: US-ASTELLAS-2011US003138

PATIENT
  Age: 69 Year
  Sex: Male
  Weight: 57 kg

DRUGS (17)
  1. GEMCITABINE HYDROCHLORIDE [Suspect]
     Indication: ADENOCARCINOMA PANCREAS
     Dosage: 1000 MG/M2, DAYS 1,8,15
     Route: 041
     Dates: start: 20100427
  2. IMC-A12 (A12; CIXUTUMUMAB) [Suspect]
     Indication: ADENOCARCINOMA PANCREAS
     Dosage: 6 MG/KG, DAYS 1,8,15 AND 22
     Route: 041
     Dates: start: 20100427, end: 20110517
  3. COLACE [Concomitant]
     Indication: PRODUCT USED FOR UNKNOWN INDICATION
     Dosage: 200 MG, UID/QD
     Route: 048
  4. NIFEDIPINE [Concomitant]
     Indication: PRODUCT USED FOR UNKNOWN INDICATION
     Dosage: 30 MG, UID/QD
     Route: 048
  5. ERLOTINIB HYDROCHLORIDE [Suspect]
     Indication: ADENOCARCINOMA PANCREAS
     Dosage: 100 MG, UID/QD
     Route: 048
     Dates: start: 20100427
  6. CREON [Concomitant]
     Indication: PRODUCT USED FOR UNKNOWN INDICATION
     Dosage: 1 DF, UID/QD
     Route: 048
  7. MORPHINE SULFATE [Concomitant]
     Indication: PAIN
     Dosage: 15 MG, PRN
     Route: 048
  8. MARINOL [Concomitant]
     Indication: PRODUCT USED FOR UNKNOWN INDICATION
     Dosage: 10 MG, TID
     Route: 065
  9. ZOFRAN [Concomitant]
     Indication: NAUSEA
     Dosage: 8 MG, Q6 HOURS, PRN
     Route: 048
  10. HEMORRHOIDAL HC [Concomitant]
     Indication: PRODUCT USED FOR UNKNOWN INDICATION
     Dosage: 25 MG, PRN
     Route: 065
  11. DEXAMETHASONE [Concomitant]
     Indication: PRODUCT USED FOR UNKNOWN INDICATION
     Dosage: 4 MG, UID/QD
     Route: 048
  12. FENTANYL [Concomitant]
     Indication: PRODUCT USED FOR UNKNOWN INDICATION
     Dosage: 200 UG, OTHER
     Route: 062
  13. FLONASE [Concomitant]
     Indication: PRODUCT USED FOR UNKNOWN INDICATION
     Dosage: 100 UG, QHS
     Route: 045
  14. ERLOTINIB HYDROCHLORIDE [Suspect]
     Dosage: 50 MG, UID/QD
     Route: 048
     Dates: end: 20110523
  15. SENNA [Concomitant]
     Indication: CONSTIPATION
     Dosage: 8.6 MG, UID/QD, PRN
     Route: 048
  16. GEMCITABINE HYDROCHLORIDE [Suspect]
     Dosage: 750 MG/M2, DAYS 1,8, 15
     Route: 041
     Dates: end: 20110517
  17. POTASSIUM CHLORIDE [Concomitant]
     Indication: PRODUCT USED FOR UNKNOWN INDICATION
     Dosage: 40 MEQ, UID/QD
     Route: 048

REACTIONS (6)
  - ABDOMINAL PAIN [None]
  - DEEP VEIN THROMBOSIS [None]
  - DISEASE PROGRESSION [None]
  - FATIGUE [None]
  - HYPOKALAEMIA [None]
  - NEUTROPENIA [None]
